FAERS Safety Report 10183142 (Version 1)
Quarter: 2014Q2

REPORT INFORMATION
  Report Type: Spontaneous
  Country: US (occurrence: US)
  Receive Date: 20140520
  Receipt Date: 20140520
  Transmission Date: 20141212
  Serious: Yes (Other)
  Sender: FDA-Public Use
  Company Number: US-ASTRAZENECA-2014SE32926

PATIENT
  Age: 822 Month
  Sex: Female
  Weight: 59.9 kg

DRUGS (9)
  1. ATENOLOL [Suspect]
     Indication: MITRAL VALVE PROLAPSE
     Route: 065
  2. ATENOLOL [Suspect]
     Indication: MITRAL VALVE PROLAPSE
     Dosage: TENORMIN 50MG DAILY
     Route: 065
  3. ATENOLOL [Suspect]
     Indication: MITRAL VALVE PROLAPSE
     Dosage: TENORMIN 25MG DAILY
     Route: 065
  4. SYMBICORT [Suspect]
     Indication: CHRONIC OBSTRUCTIVE PULMONARY DISEASE
     Dosage: 160/4.5 MCG 2 PUFFS TWICE A DAY
     Route: 055
  5. ZOFRAN [Concomitant]
     Indication: NAUSEA
     Dosage: NR Q8H
  6. PROMETHAZINE [Concomitant]
     Indication: NAUSEA
     Dosage: NR Q6H
  7. ZANTAC [Concomitant]
     Dosage: NR PRN
  8. XANAX [Concomitant]
     Indication: SLEEP DISORDER
     Dosage: NR PRN
  9. PROAIR [Concomitant]
     Indication: RESPIRATORY DISORDER
     Dosage: NR PRN

REACTIONS (5)
  - Lung neoplasm malignant [Unknown]
  - Palpitations [Unknown]
  - Hypotension [Unknown]
  - Off label use [Unknown]
  - Drug ineffective [Unknown]
